FAERS Safety Report 21473308 (Version 2)
Quarter: 2022Q4

REPORT INFORMATION
  Report Type: Report from Study
  Country: US (occurrence: US)
  Receive Date: 20221018
  Receipt Date: 20221110
  Transmission Date: 20230112
  Serious: Yes (Hospitalization, Other)
  Sender: FDA-Public Use
  Company Number: US-BRISTOL-MYERS SQUIBB COMPANY-2022-121360

PATIENT
  Age: 69 Year
  Sex: Male
  Weight: 89.81 kg

DRUGS (6)
  1. REVLIMID [Suspect]
     Active Substance: LENALIDOMIDE
     Indication: Plasma cell myeloma
     Dosage: 21 DAYS CYCLE
     Route: 048
     Dates: start: 20220602
  2. REVLIMID [Suspect]
     Active Substance: LENALIDOMIDE
     Dosage: 14 OUT OF 21 DAYS
     Route: 048
     Dates: start: 202206
  3. ASPIRIN [Concomitant]
     Active Substance: ASPIRIN
  4. VITAMINS NOS [Concomitant]
     Active Substance: VITAMINS
  5. IRON FERROUS [Concomitant]
     Indication: Product used for unknown indication
     Route: 065
  6. MAGLAX [MAGNESIUM OXIDE] [Concomitant]
     Indication: Product used for unknown indication
     Route: 065

REACTIONS (8)
  - Dyspnoea [Unknown]
  - Respiratory distress [Unknown]
  - Ulcer haemorrhage [Unknown]
  - Thrombosis [Unknown]
  - Chronic obstructive pulmonary disease [Unknown]
  - Hypotension [Unknown]
  - Back pain [Unknown]
  - Off label use [Unknown]
